FAERS Safety Report 9689424 (Version 9)
Quarter: 2014Q2

REPORT INFORMATION
  Report Type: Report from Study
  Country: JP (occurrence: JP)
  Receive Date: 20131114
  Receipt Date: 20140606
  Transmission Date: 20141212
  Serious: Yes (Death, Hospitalization, Other)
  Sender: FDA-Public Use
  Company Number: JP-ASTRAZENECA-2013SE82887

PATIENT
  Age: 27298 Day
  Sex: Male

DRUGS (12)
  1. AZD6140 [Suspect]
     Indication: CORONARY ARTERY DISEASE
     Route: 048
     Dates: start: 20120314, end: 20131101
  2. AZD6140 [Suspect]
     Indication: CORONARY ARTERY DISEASE
     Route: 048
     Dates: start: 20131108, end: 20140209
  3. ASA [Concomitant]
     Route: 048
     Dates: end: 20131101
  4. ASA [Concomitant]
     Route: 048
     Dates: start: 20131108, end: 20140209
  5. ASA [Concomitant]
     Route: 048
     Dates: start: 20140218
  6. PURSENNID [Concomitant]
     Indication: CONSTIPATION
     Route: 048
     Dates: start: 20130710
  7. MEVALOTIN [Concomitant]
     Indication: HYPERCHOLESTEROLAEMIA
     Route: 048
  8. ARTIST [Concomitant]
     Indication: HYPERTENSION
     Route: 048
  9. TAKEPRON OD [Concomitant]
     Indication: PROPHYLAXIS AGAINST GASTROINTESTINAL ULCER
     Route: 048
  10. DIOVAN [Concomitant]
     Indication: HYPERTENSION
     Route: 048
     Dates: start: 20130313
  11. MAGNESIUM OXIDE [Concomitant]
     Indication: CONSTIPATION
     Route: 048
  12. HALCION [Concomitant]
     Indication: INSOMNIA
     Route: 048

REACTIONS (1)
  - Squamous cell carcinoma [Fatal]
